FAERS Safety Report 8889379 (Version 1)
Quarter: 2012Q4

REPORT INFORMATION
  Report Type: Spontaneous
  Country: US (occurrence: None)
  Receive Date: 20121102
  Receipt Date: 20121102
  Transmission Date: 20130627
  Serious: No
  Sender: FDA-Public Use
  Company Number: None

PATIENT
  Age: 56 Year
  Sex: Female
  Weight: 72.67 kg

DRUGS (1)
  1. CARBOPLATIN [Suspect]
     Route: 042
     Dates: start: 20120517, end: 20121101

REACTIONS (9)
  - Erythema [None]
  - Dyspnoea [None]
  - Paraesthesia [None]
  - Oedema peripheral [None]
  - Emotional disorder [None]
  - Crying [None]
  - Headache [None]
  - Feeling cold [None]
  - Blood pressure systolic increased [None]
